FAERS Safety Report 7718324-9 (Version None)
Quarter: 2011Q3

REPORT INFORMATION
  Report Type: 
  Country: None (occurrence: None)
  Receive Date: 20110830
  Receipt Date: 20110822
  Transmission Date: 20111222
  Serious: No
  Sender: FDA-Public Use
  Company Number: US-PFIZER INC-2011194905

PATIENT
  Sex: Male
  Weight: 81.633 kg

DRUGS (1)
  1. FLAGYL [Suspect]
     Indication: CLOSTRIDIAL INFECTION
     Dosage: UNK
     Dates: start: 20110624, end: 20110627

REACTIONS (2)
  - RASH [None]
  - ERYTHEMA [None]
